FAERS Safety Report 14475895 (Version 1)
Quarter: 2018Q1

REPORT INFORMATION
  Report Type: Report from Study
  Country: DE (occurrence: DE)
  Receive Date: 20180201
  Receipt Date: 20180201
  Transmission Date: 20180509
  Serious: Yes (Hospitalization)
  Sender: FDA-Public Use
  Company Number: DE-SA-2018SA023360

PATIENT
  Age: 75 Year
  Sex: Female

DRUGS (6)
  1. DRONEDARONE [Suspect]
     Active Substance: DRONEDARONE
     Indication: CONVERSION DISORDER
     Route: 065
     Dates: end: 20171113
  2. BISOPROLOL [Concomitant]
     Active Substance: BISOPROLOL
  3. AMIODARONE [Suspect]
     Active Substance: AMIODARONE
     Indication: CONVERSION DISORDER
     Route: 065
     Dates: start: 20171113
  4. LISINOPRIL. [Concomitant]
     Active Substance: LISINOPRIL
  5. HYDROCHLOROTHIAZIDE. [Concomitant]
     Active Substance: HYDROCHLOROTHIAZIDE
  6. PHENPROCOUMON [Concomitant]
     Active Substance: PHENPROCOUMON

REACTIONS (1)
  - Joint injury [Recovered/Resolved]

NARRATIVE: CASE EVENT DATE: 20171123
